FAERS Safety Report 7820350-6 (Version None)
Quarter: 2011Q4

REPORT INFORMATION
  Report Type: 
  Country: None (occurrence: None)
  Receive Date: 20111018
  Receipt Date: 20110926
  Transmission Date: 20120403
  Serious: Yes (Other)
  Sender: FDA-Public Use
  Company Number: US-ROCHE-1004358

PATIENT
  Sex: Female

DRUGS (2)
  1. CLONAZEPAM [Suspect]
     Indication: NEUROPATHY PERIPHERAL
     Dosage: UNKNOWN
  2. KLONOPIN [Suspect]
     Indication: NEUROPATHY PERIPHERAL
     Dosage: UNKNOWN

REACTIONS (1)
  - COLECTOMY [None]
